FAERS Safety Report 7932484-6 (Version None)
Quarter: 2011Q4

REPORT INFORMATION
  Report Type: 
  Country: None (occurrence: None)
  Receive Date: 20111122
  Receipt Date: 20111116
  Transmission Date: 20120403
  Serious: No
  Sender: FDA-Public Use
  Company Number: US-BIOGENIDEC-2010BI034467

PATIENT
  Sex: Female

DRUGS (1)
  1. TYSABRI [Suspect]
     Indication: MULTIPLE SCLEROSIS
     Route: 042
     Dates: start: 20100512

REACTIONS (8)
  - SPEECH DISORDER [None]
  - MOBILITY DECREASED [None]
  - SOMNOLENCE [None]
  - MULTIPLE SCLEROSIS [None]
  - HEMIPARESIS [None]
  - GENERAL SYMPTOM [None]
  - DYSPHONIA [None]
  - DRUG INEFFECTIVE [None]
